FAERS Safety Report 6698573-1 (Version None)
Quarter: 2010Q2

REPORT INFORMATION
  Report Type: 
  Country: None (occurrence: None)
  Receive Date: 20100427
  Receipt Date: 20100415
  Transmission Date: 20101027
  Serious: No
  Sender: FDA-Public Use
  Company Number: US-JNJFOC-20100404656

PATIENT
  Age: 44 Year
  Sex: Female
  Weight: 67.13 kg

DRUGS (3)
  1. DURAGESIC-100 [Suspect]
     Indication: NEUROPATHY PERIPHERAL
     Dosage: NDC# 50458-0093-05
     Route: 062
  2. SEIZURE MEDICATIONS [Concomitant]
     Indication: CONVULSION
  3. UNKNOWN MEDICATION [Concomitant]
     Indication: LIVER DISORDER

REACTIONS (1)
  - WRONG TECHNIQUE IN DRUG USAGE PROCESS [None]
